FAERS Safety Report 16307878 (Version 3)
Quarter: 2021Q4

REPORT INFORMATION
  Report Type: Report from Study
  Country: JP (occurrence: JP)
  Receive Date: 20190514
  Receipt Date: 20211206
  Transmission Date: 20220304
  Serious: Yes (Hospitalization, Other)
  Sender: FDA-Public Use
  Company Number: JP-BAUSCH-BL-2019-013829

PATIENT
  Age: 32 Year
  Sex: Male
  Weight: 76 kg

DRUGS (2)
  1. BRODALUMAB [Suspect]
     Active Substance: BRODALUMAB
     Indication: Psoriasis
     Route: 058
     Dates: start: 20180728, end: 20180804
  2. BRODALUMAB [Suspect]
     Active Substance: BRODALUMAB
     Route: 058
     Dates: start: 20180811, end: 20181020

REACTIONS (1)
  - Aspergilloma [Recovering/Resolving]

NARRATIVE: CASE EVENT DATE: 20181027
